FAERS Safety Report 5170662-2 (Version None)
Quarter: 2006Q4

REPORT INFORMATION
  Report Type: 
  Country: None (occurrence: None)
  Receive Date: 20061204
  Receipt Date: 20061124
  Transmission Date: 20070319
  Serious: Yes (Other)
  Sender: FDA-Public Use
  Company Number: 2006126387

PATIENT
  Sex: Male
  Weight: 96.1626 kg

DRUGS (28)
  1. LISTERINE ANTISEPTIC MOUTHWASH (MENTHOL, METHYL SALICYLATE, EUCALYPTOL [Suspect]
     Indication: DENTAL DISORDER PROPHYLAXIS
     Dosage: 2 PUMPSS WITH ONE PUMP WATER ONCE, ORAL
  2. BEZAFIBRATE [Concomitant]
  3. ACETAMINOPHEN [Concomitant]
  4. BACLOFEN [Concomitant]
  5. BECOSYM FORTE (NICOTINAMIDE, PYRIDOXINE HYDROCHLORIDE, RIBOFLAVIN, THI [Concomitant]
  6. ROSUVASTATIN [Concomitant]
  7. TELMISARTAN [Concomitant]
  8. PANTOPRAZOLE SODIUM [Concomitant]
  9. UBIDECARENONE [Concomitant]
  10. NAPROXEN [Concomitant]
  11. LORAZEPAM [Concomitant]
  12. OXYBUTYNIN [Concomitant]
  13. CODEINE PHOSPHATE AND ACETAMINOPHEN [Concomitant]
  14. FOLIC ACID [Concomitant]
  15. SYMBICORT [Concomitant]
  16. CLOBAZAM [Concomitant]
  17. PYRIDOXINE HYDROCHLORIDE INJ [Concomitant]
  18. BETAHISTINE HYDROCHLORIDE [Concomitant]
  19. EZETIMIBE [Concomitant]
  20. CYANOCOBALAMIN [Concomitant]
  21. DILTIAZEM HCL [Concomitant]
  22. ACETYSALICYLIC ACID [Concomitant]
  23. PAROXETINE HCL [Concomitant]
  24. GLYCERYL TRINITRATE [Concomitant]
  25. CLONAZEPAM [Concomitant]
  26. ASCORBIC ACID [Concomitant]
  27. WARFARIN SODIUM [Concomitant]
  28. DRUG, UNSPECIFIED [Concomitant]

REACTIONS (1)
  - HYPERSENSITIVITY [None]
